FAERS Safety Report 14674615 (Version 1)
Quarter: 2018Q1

REPORT INFORMATION
  Report Type: Spontaneous
  Country: AU (occurrence: AU)
  Receive Date: 20180323
  Receipt Date: 20180323
  Transmission Date: 20180509
  Serious: Yes (Hospitalization)
  Sender: FDA-Public Use
  Company Number: AU-SILVERGATE PHARMACEUTICALS, INC.-2018SIL00011

PATIENT
  Age: 67 Year
  Sex: Female

DRUGS (2)
  1. METHOTREXATE. [Suspect]
     Active Substance: METHOTREXATE
     Indication: BREAST CANCER METASTATIC
     Dosage: 45 MG, OVER 4 PRIOR TREATMENTS OVER 1 MONTH
  2. METHOTREXATE. [Suspect]
     Active Substance: METHOTREXATE
     Dosage: 12 MG, ONCE

REACTIONS (3)
  - Encephalitis toxic [Recovering/Resolving]
  - Cerebral cyst [Recovering/Resolving]
  - Neurotoxicity [Recovering/Resolving]
